FAERS Safety Report 24279167 (Version 3)
Quarter: 2024Q4

REPORT INFORMATION
  Report Type: Spontaneous
  Country: US (occurrence: US)
  Receive Date: 20240903
  Receipt Date: 20241021
  Transmission Date: 20250115
  Serious: Yes (Other)
  Sender: PFIZER
  Company Number: US-PFIZER INC-202400246613

PATIENT
  Age: 57 Year
  Sex: Female
  Weight: 113.4 kg

DRUGS (17)
  1. LORBRENA [Suspect]
     Active Substance: LORLATINIB
     Indication: Lung neoplasm malignant
     Dosage: 100 MG, DAILY
     Dates: start: 20240118, end: 2024
  2. LORBRENA [Suspect]
     Active Substance: LORLATINIB
     Dosage: 75 MG
     Dates: start: 2024, end: 2024
  3. LORBRENA [Suspect]
     Active Substance: LORLATINIB
     Dosage: 100 MG, DAILY
     Route: 048
     Dates: start: 2024, end: 2024
  4. ELIQUIS [Concomitant]
     Active Substance: APIXABAN
     Indication: Pulmonary embolism
     Dosage: MORNING/EVENING
  5. ATORVASTATIN [Concomitant]
     Active Substance: ATORVASTATIN
     Indication: Hyperlipidaemia
     Dosage: MORNING
  6. HYDROCHLOROTHIAZIDE [Concomitant]
     Active Substance: HYDROCHLOROTHIAZIDE
     Indication: Hypertension
     Dosage: MORNING
  7. METOPROLOL [Concomitant]
     Active Substance: METOPROLOL
     Indication: Hypertension
     Dosage: EVENING
  8. RITALIN [Concomitant]
     Active Substance: METHYLPHENIDATE HYDROCHLORIDE
     Indication: Disturbance in attention
     Dosage: MORNING
  9. RITALIN [Concomitant]
     Active Substance: METHYLPHENIDATE HYDROCHLORIDE
     Indication: Asthenia
  10. COENZYME Q10 [Concomitant]
     Active Substance: DIETARY SUPPLEMENT\UBIDECARENONE
     Dosage: MORNING
  11. GABAPENTIN [Concomitant]
     Active Substance: GABAPENTIN
     Indication: Neuropathy peripheral
     Dosage: EVENING
  12. ZETIA [Concomitant]
     Active Substance: EZETIMIBE
     Indication: Hyperlipidaemia
     Dosage: EVENING
  13. WEGOVY [Concomitant]
     Active Substance: SEMAGLUTIDE
     Indication: Weight abnormal
     Dosage: 1/WEEK
  14. WEGOVY [Concomitant]
     Active Substance: SEMAGLUTIDE
     Indication: Hyperlipidaemia
  15. LORAZEPAM [Concomitant]
     Active Substance: LORAZEPAM
     Dosage: 1MG FOR MRI VISITS
  16. ALPRAZOLAM [Concomitant]
     Active Substance: ALPRAZOLAM
     Indication: Anxiety
     Dosage: 0.25 MG, AS NEEDED
  17. HYDROCODONE [Concomitant]
     Active Substance: HYDROCODONE
     Indication: Pain
     Dosage: UNK, AS NEEDED

REACTIONS (3)
  - Neuropathy peripheral [Recovering/Resolving]
  - Weight increased [Not Recovered/Not Resolved]
  - Lipids increased [Recovering/Resolving]

NARRATIVE: CASE EVENT DATE: 20240118
